FAERS Safety Report 8301667-8 (Version None)
Quarter: 2012Q1

REPORT INFORMATION
  Report Type: 
  Country: None (occurrence: None)
  Receive Date: 20120326
  Receipt Date: 20110808
  Transmission Date: 20120608
  Serious: Yes (Other)
  Sender: FDA-Public Use
  Company Number: PHHY2011US67151

PATIENT
  Age: 56 Year
  Sex: Female
  Weight: 78.5 kg

DRUGS (8)
  1. VAGIFEM [Concomitant]
  2. DIOVAN HCT [Concomitant]
  3. CENESTIN [Concomitant]
  4. NASONEX [Concomitant]
  5. TASIGNA [Suspect]
     Indication: CHRONIC MYELOID LEUKAEMIA
     Dosage: 400 MG, Q12H, ORAL
     Route: 048
     Dates: start: 20100301
  6. SYNTHROID [Concomitant]
  7. SUDAFED 12 HOUR [Concomitant]
  8. FLUCONAZOLE [Concomitant]

REACTIONS (3)
  - PLATELET COUNT INCREASED [None]
  - WHITE BLOOD CELL COUNT INCREASED [None]
  - CHRONIC MYELOID LEUKAEMIA [None]
